FAERS Safety Report 10301987 (Version 1)
Quarter: 2014Q3

REPORT INFORMATION
  Report Type: Spontaneous
  Country: US (occurrence: US)
  Receive Date: 20140714
  Receipt Date: 20140714
  Transmission Date: 20150326
  Serious: No
  Sender: FDA-Public Use
  Company Number: US-BAYER-2014-105241

PATIENT
  Age: 15 Year
  Sex: Female
  Weight: 63 kg

DRUGS (1)
  1. MIDOL [Suspect]
     Active Substance: IBUPROFEN
     Indication: DYSMENORRHOEA
     Dosage: 1 DF, PRN (EVERY 12 HOURS AS NEEDED)
     Route: 048
     Dates: start: 201406

REACTIONS (1)
  - Drug ineffective [None]

NARRATIVE: CASE EVENT DATE: 201406
